FAERS Safety Report 25004848 (Version 2)
Quarter: 2025Q1

REPORT INFORMATION
  Report Type: Spontaneous
  Country: US (occurrence: US)
  Receive Date: 20250224
  Receipt Date: 20250227
  Transmission Date: 20250408
  Serious: Yes (Life-Threatening, Hospitalization)
  Sender: SAMSUNG BIOEPIS
  Company Number: US-SAMSUNG BIOEPIS-SB-2025-06717

PATIENT
  Age: 77 Year
  Sex: Female

DRUGS (4)
  1. TRASTUZUMAB [Suspect]
     Active Substance: TRASTUZUMAB
     Indication: Breast cancer stage IV
     Dates: start: 2023, end: 202312
  2. TRASTUZUMAB [Suspect]
     Active Substance: TRASTUZUMAB
     Dates: start: 202402
  3. CAPECITABINE [Suspect]
     Active Substance: CAPECITABINE
     Indication: Breast cancer stage IV
     Dates: start: 2023
  4. CAPECITABINE [Suspect]
     Active Substance: CAPECITABINE

REACTIONS (4)
  - Stress cardiomyopathy [Recovered/Resolved]
  - Cardiac ventricular thrombosis [Recovered/Resolved]
  - Embolic stroke [Unknown]
  - Off label use [Unknown]
